FAERS Safety Report 8471739 (Version 3)
Quarter: 2012Q4

REPORT INFORMATION
  Report Type: 
  Country: FR (occurrence: FR)
  Receive Date: 20120322
  Receipt Date: 20121025
  Transmission Date: 20130627
  Serious: Yes (Other)
  Sender: FDA-Public Use
  Company Number: FR-PFIZER INC-2012069039

PATIENT
  Age: 3 Day
  Sex: Female

DRUGS (1)
  1. EFFEXOR LP [Suspect]
     Indication: ANXIETY
     Dosage: 112.5 mg (37.5mg, 3DF), 1x/day
     Route: 064
     Dates: start: 199903, end: 200101

REACTIONS (6)
  - Maternal exposure timing unspecified [Not Recovered/Not Resolved]
  - Developmental delay [Not Recovered/Not Resolved]
  - Attention deficit/hyperactivity disorder [Not Recovered/Not Resolved]
  - Insomnia [Not Recovered/Not Resolved]
  - Restlessness [Not Recovered/Not Resolved]
  - Agitation [Not Recovered/Not Resolved]
